FAERS Safety Report 24824025 (Version 1)
Quarter: 2025Q1

REPORT INFORMATION
  Report Type: Spontaneous
  Country: ES (occurrence: ES)
  Receive Date: 20250109
  Receipt Date: 20250109
  Transmission Date: 20250409
  Serious: Yes (Death, Other)
  Sender: JOHNSON AND JOHNSON
  Company Number: ES-ACTELION-A-CH2013-84089

PATIENT

DRUGS (3)
  1. TRACLEER [Suspect]
     Active Substance: BOSENTAN
     Indication: Pulmonary hypertension
     Route: 048
  2. NITRIC OXIDE [Concomitant]
     Active Substance: NITRIC OXIDE
  3. SILDENAFIL [Concomitant]
     Active Substance: SILDENAFIL

REACTIONS (4)
  - Hyperglycinaemia [Fatal]
  - Pulmonary oedema [Unknown]
  - Pulmonary haemorrhage [Unknown]
  - Off label use [Unknown]
